FAERS Safety Report 14474072 (Version 2)
Quarter: 2018Q2

REPORT INFORMATION
  Report Type: Spontaneous
  Country: US (occurrence: US)
  Receive Date: 20180201
  Receipt Date: 20180422
  Transmission Date: 20180711
  Serious: Yes (Other)
  Sender: FDA-Public Use
  Company Number: US-APOTEX-2018AP006301

PATIENT
  Age: 51 Year
  Sex: Female

DRUGS (7)
  1. GABAPENTIN. [Suspect]
     Active Substance: GABAPENTIN
     Indication: PRODUCT USED FOR UNKNOWN INDICATION
     Dosage: UNK
     Route: 065
  2. LIDOCAINE. [Concomitant]
     Active Substance: LIDOCAINE
     Indication: GLOSSOPHARYNGEAL NEURALGIA
     Dosage: UNK
     Route: 065
  3. METHYLPREDNISOLONE. [Suspect]
     Active Substance: METHYLPREDNISOLONE
     Indication: GLOSSOPHARYNGEAL NEURALGIA
     Dosage: UNK
     Route: 065
  4. OXCARBAZEPINE. [Suspect]
     Active Substance: OXCARBAZEPINE
     Indication: GLOSSOPHARYNGEAL NEURALGIA
     Dosage: 600 MG, BID
     Route: 065
  5. NORTRIPTYLINE [Suspect]
     Active Substance: NORTRIPTYLINE
     Indication: GLOSSOPHARYNGEAL NEURALGIA
     Dosage: 20 MG, AT NIGHT
     Route: 065
  6. VALACICLOVIR [Suspect]
     Active Substance: VALACYCLOVIR HYDROCHLORIDE
     Indication: GLOSSOPHARYNGEAL NEURALGIA
     Dosage: UNK
     Route: 065
  7. TOPIRAMATE. [Suspect]
     Active Substance: TOPIRAMATE
     Indication: GLOSSOPHARYNGEAL NEURALGIA
     Dosage: 50 MG, BID
     Route: 065

REACTIONS (2)
  - Sedation [Unknown]
  - Drug ineffective [Unknown]
